FAERS Safety Report 13555897 (Version 1)
Quarter: 2017Q2

REPORT INFORMATION
  Report Type: Spontaneous
  Country: US (occurrence: US)
  Receive Date: 20170517
  Receipt Date: 20170517
  Transmission Date: 20170830
  Serious: Yes (Other)
  Sender: FDA-Public Use
  Company Number: US-TAKEDA-2017TUS010740

PATIENT
  Age: 42 Year
  Sex: Female

DRUGS (5)
  1. TRINTELLIX [Suspect]
     Active Substance: VORTIOXETINE HYDROBROMIDE
     Dosage: 10 MG, QD
     Route: 048
  2. LUNESTA [Concomitant]
     Active Substance: ESZOPICLONE
     Dosage: UNK
  3. TRINTELLIX [Suspect]
     Active Substance: VORTIOXETINE HYDROBROMIDE
     Indication: ANXIETY
     Dosage: 5 MG, QD
     Route: 048
  4. TRINTELLIX [Suspect]
     Active Substance: VORTIOXETINE HYDROBROMIDE
     Dosage: 20 MG, QD
     Route: 048
  5. ALPRAZOLAM. [Concomitant]
     Active Substance: ALPRAZOLAM
     Dosage: UNK

REACTIONS (2)
  - Off label use [Unknown]
  - Serotonin syndrome [Unknown]
